FAERS Safety Report 25207523 (Version 1)
Quarter: 2025Q2

REPORT INFORMATION
  Report Type: Spontaneous
  Country: US (occurrence: US)
  Receive Date: 20250417
  Receipt Date: 20250417
  Transmission Date: 20250717
  Serious: No
  Sender: BAYER
  Company Number: US-BAYER-2025A050219

PATIENT
  Age: 28 Year
  Sex: Female

DRUGS (2)
  1. MIRENA [Suspect]
     Active Substance: LEVONORGESTREL
     Indication: Intrauterine contraception
     Dosage: 20?G/DAY
     Route: 015
     Dates: start: 202502
  2. ZURZUVAE [Concomitant]
     Active Substance: ZURANOLONE

REACTIONS (4)
  - Muscular weakness [None]
  - Tremor [None]
  - Dizziness [None]
  - Bradyphrenia [None]
